FAERS Safety Report 8874623 (Version 4)
Quarter: 2013Q3

REPORT INFORMATION
  Report Type: Report from Study
  Country: JP (occurrence: JP)
  Receive Date: 20121023
  Receipt Date: 20130717
  Transmission Date: 20140515
  Serious: Yes (Other)
  Sender: FDA-Public Use
  Company Number: JP-VERTEX PHARMACEUTICAL INC.-2012-023370

PATIENT
  Age: 64 Year
  Sex: Female

DRUGS (15)
  1. VX-950 (TELAPREVIR) [Suspect]
     Indication: CHRONIC HEPATITIS C
     Dosage: 1500 MG, QD
     Route: 048
     Dates: start: 20120811, end: 20120928
  2. VX-950 (TELAPREVIR) [Suspect]
     Dosage: 750 MG, QD
     Route: 048
     Dates: start: 20120929, end: 20121005
  3. REBETOL [Suspect]
     Indication: CHRONIC HEPATITIS C
     Dosage: 600 MG, QD
     Route: 048
     Dates: start: 20120811, end: 20120907
  4. REBETOL [Suspect]
     Dosage: 400 MG, QD
     Route: 048
     Dates: start: 20120908, end: 20120914
  5. REBETOL [Suspect]
     Dosage: 200 MG, QD
     Route: 048
     Dates: start: 20120915, end: 20121116
  6. REBETOL [Suspect]
     Dosage: 400 MG, QD
     Route: 048
     Dates: start: 20121117, end: 20130125
  7. PEGINTERFERON ALFA-2B [Suspect]
     Indication: CHRONIC HEPATITIS C
     Dosage: 1.5 ?G/KG, WEEKLY
     Route: 058
     Dates: start: 20120811, end: 20130119
  8. ALOSITOL [Concomitant]
     Dosage: 200 MG, QD
     Route: 048
     Dates: end: 20121018
  9. DIOVAN [Concomitant]
     Dosage: 160 MG, QD
     Route: 048
     Dates: start: 20121110, end: 20121123
  10. CONIEL [Concomitant]
     Dosage: 8 MG, QD
     Route: 048
     Dates: start: 20121110, end: 20121117
  11. AMLODIN [Concomitant]
     Dosage: 5 MG, QD
     Route: 048
     Dates: start: 20121117, end: 20121130
  12. AVAPRO [Concomitant]
     Dosage: 100 MG, QD
     Route: 048
     Dates: start: 20121124, end: 20121130
  13. REZALTAS [Concomitant]
     Dosage: 1 DF, QD
     Route: 048
     Dates: start: 20121201
  14. CARDENALIN [Concomitant]
     Dosage: 2 MG, QD
     Route: 048
     Dates: start: 20121201, end: 20121228
  15. CARDENALIN [Concomitant]
     Dosage: 4 MG, QD
     Route: 048
     Dates: start: 20121229

REACTIONS (2)
  - Renal impairment [Recovered/Resolved]
  - Anaemia [Recovered/Resolved]
